FAERS Safety Report 5199693-3 (Version None)
Quarter: 2007Q1

REPORT INFORMATION
  Report Type: 
  Country: None (occurrence: None)
  Receive Date: 20070105
  Receipt Date: 20061227
  Transmission Date: 20070707
  Serious: Yes (Other)
  Sender: FDA-Public Use
  Company Number: US-JNJFOC-20061207027

PATIENT
  Age: 70 Year
  Sex: Female

DRUGS (12)
  1. TYLOX [Suspect]
     Indication: PROCEDURAL PAIN
     Route: 048
  2. ACETAMINOPHEN AND HYDROCODONE BITARTRATE [Suspect]
     Indication: PROCEDURAL PAIN
     Route: 048
  3. DARVOCET [Suspect]
     Indication: TENDON PAIN
     Route: 048
  4. FLAGYL [Concomitant]
  5. PERCODAN [Concomitant]
  6. HOMATROPINE TEREPHTHALATE [Concomitant]
  7. PROVIGIL [Concomitant]
  8. WELLBUTRIN [Concomitant]
  9. PROZAC [Concomitant]
  10. TRAZODONE HCL [Concomitant]
  11. KLONOPIN [Concomitant]
  12. CIPRO [Concomitant]

REACTIONS (2)
  - DYSPNOEA [None]
  - HEPATOMEGALY [None]
